FAERS Safety Report 6945512-1 (Version None)
Quarter: 2010Q3

REPORT INFORMATION
  Report Type: 
  Country: None (occurrence: None)
  Receive Date: 20100827
  Receipt Date: 20100819
  Transmission Date: 20110219
  Serious: Yes (Other)
  Sender: FDA-Public Use
  Company Number: BR-ROCHE-722776

PATIENT
  Age: 40 Year
  Sex: Male

DRUGS (1)
  1. ROACUTAN [Suspect]
     Indication: ACNE
     Route: 065
     Dates: start: 20020101, end: 20030101

REACTIONS (5)
  - ACTIVATED PARTIAL THROMBOPLASTIN TIME ABNORMAL [None]
  - COAGULATION TIME PROLONGED [None]
  - HEPATIC FUNCTION ABNORMAL [None]
  - INTERNATIONAL NORMALISED RATIO INCREASED [None]
  - SURGERY [None]
